FAERS Safety Report 25244153 (Version 2)
Quarter: 2025Q2

REPORT INFORMATION
  Report Type: Spontaneous
  Country: JP (occurrence: JP)
  Receive Date: 20250428
  Receipt Date: 20250507
  Transmission Date: 20250716
  Serious: Yes (Hospitalization, Other)
  Sender: JOHNSON AND JOHNSON
  Company Number: JP-JNJFOC-20250437059

PATIENT
  Age: 73 Year
  Sex: Male

DRUGS (3)
  1. ERLEADA [Suspect]
     Active Substance: APALUTAMIDE
     Indication: Prostate cancer
     Route: 048
     Dates: start: 20221026, end: 20250424
  2. URSO [Suspect]
     Active Substance: URSODIOL
     Indication: Product used for unknown indication
     Route: 048
     Dates: end: 20250424
  3. BISOPROLOL [Suspect]
     Active Substance: BISOPROLOL
     Indication: Product used for unknown indication
     Route: 065
     Dates: end: 20250424

REACTIONS (1)
  - Platelet count decreased [Not Recovered/Not Resolved]

NARRATIVE: CASE EVENT DATE: 20250424
